APPROVED DRUG PRODUCT: LEVETIRACETAM
Active Ingredient: LEVETIRACETAM
Strength: 100MG/ML
Dosage Form/Route: SOLUTION;ORAL
Application: A090601 | Product #001
Applicant: HIKMA PHARMACEUTICALS USA INC
Approved: Feb 28, 2012 | RLD: No | RS: No | Type: DISCN